FAERS Safety Report 17017470 (Version 1)
Quarter: 2019Q4

REPORT INFORMATION
  Report Type: Spontaneous
  Country: CA (occurrence: CA)
  Receive Date: 20191111
  Receipt Date: 20191111
  Transmission Date: 20200122
  Serious: Yes (Disabling, Other)
  Sender: FDA-Public Use
  Company Number: CA-AMGEN-CANSP2019127095

PATIENT
  Age: 63 Year
  Sex: Male
  Weight: 47.62 kg

DRUGS (9)
  1. PROLIA [Suspect]
     Active Substance: DENOSUMAB
     Indication: OSTEOPOROSIS
     Dosage: UNK
     Route: 065
     Dates: start: 20190430
  2. RANITIDINE. [Concomitant]
     Active Substance: RANITIDINE
     Indication: DYSPEPSIA
     Dosage: UNK
  3. SEROQUEL [Concomitant]
     Active Substance: QUETIAPINE FUMARATE
     Dosage: UNK
  4. ANDROGEL [Concomitant]
     Active Substance: TESTOSTERONE
     Dosage: UNK
  5. PROLIA [Suspect]
     Active Substance: DENOSUMAB
     Dosage: UNK
     Route: 065
  6. ATIVAN [Concomitant]
     Active Substance: LORAZEPAM
     Dosage: UNK
  7. SUCRALFATE. [Concomitant]
     Active Substance: SUCRALFATE
     Dosage: UNK
  8. VITAMINE D [Concomitant]
     Active Substance: CHOLECALCIFEROL
     Dosage: UNK
  9. CALCIUM [Concomitant]
     Active Substance: CALCIUM
     Dosage: UNK

REACTIONS (26)
  - Weight decreased [Unknown]
  - Impaired work ability [Unknown]
  - Arthralgia [Not Recovered/Not Resolved]
  - Hearing disability [Unknown]
  - Spinal pain [Unknown]
  - Alopecia [Unknown]
  - Musculoskeletal pain [Not Recovered/Not Resolved]
  - Neck pain [Unknown]
  - Dyspnoea [Unknown]
  - Infection parasitic [Unknown]
  - Insomnia [Not Recovered/Not Resolved]
  - Pain in extremity [Unknown]
  - Ear pain [Unknown]
  - Rash [Unknown]
  - Bone pain [Not Recovered/Not Resolved]
  - Palpitations [Unknown]
  - Mouth ulceration [Unknown]
  - Dizziness [Unknown]
  - Toxicity to various agents [Unknown]
  - Swelling [Unknown]
  - Burning sensation [Unknown]
  - Speech disorder [Unknown]
  - Loss of consciousness [Unknown]
  - Pain [Unknown]
  - Dyspepsia [Not Recovered/Not Resolved]
  - Pain in jaw [Unknown]

NARRATIVE: CASE EVENT DATE: 2019
